FAERS Safety Report 12180276 (Version 1)
Quarter: 2016Q1

REPORT INFORMATION
  Report Type: Spontaneous
  Country: US (occurrence: None)
  Receive Date: 20160314
  Receipt Date: 20160314
  Transmission Date: 20160526
  Serious: Yes (Hospitalization)
  Sender: FDA-Public Use
  Company Number: None

PATIENT
  Age: 25 Year
  Sex: Female
  Weight: 63.5 kg

DRUGS (3)
  1. CLOTRIMAZOLE 3 (2% [Suspect]
     Active Substance: CLOTRIMAZOLE
     Indication: FUNGAL INFECTION
     Dosage: TUBE OF THREE DAY CREAM AT BEDTIME VAGINAL
     Route: 067
     Dates: start: 20160306, end: 20160309
  2. IBUPROFEN. [Concomitant]
     Active Substance: IBUPROFEN
  3. DASETTA 7/7/7 [Concomitant]
     Active Substance: ETHINYL ESTRADIOL\NORETHINDRONE

REACTIONS (7)
  - Dermatitis contact [None]
  - Application site discharge [None]
  - Influenza like illness [None]
  - Vulvovaginal rash [None]
  - Application site swelling [None]
  - Application site pain [None]
  - Application site erythema [None]

NARRATIVE: CASE EVENT DATE: 20160310
